FAERS Safety Report 12390534 (Version 1)
Quarter: 2016Q2

REPORT INFORMATION
  Report Type: Spontaneous
  Country: NL (occurrence: NL)
  Receive Date: 20160520
  Receipt Date: 20160520
  Transmission Date: 20160815
  Serious: Yes (Hospitalization)
  Sender: FDA-Public Use
  Company Number: NL-TEVA-659924ACC

PATIENT
  Age: 65 Year
  Sex: Female
  Weight: 75 kg

DRUGS (3)
  1. HYDROCHLOORTHIAZIDE TABLET 25MG [Interacting]
     Active Substance: HYDROCHLOROTHIAZIDE
     Indication: HYPERTENSION
     Dosage: 25 MILLIGRAM DAILY; ONCE DAILY ONE PIECE
     Route: 048
     Dates: start: 2011, end: 20160429
  2. CARBAMAZEPINE TABLET 50MG [Suspect]
     Active Substance: CARBAMAZEPINE
     Indication: POLYNEUROPATHY CHRONIC
     Dosage: 200 MILLIGRAM DAILY; TWICE DAILY TWO PIECES
     Route: 048
     Dates: start: 20160422, end: 20160429
  3. DULOXETINE CAPSULE MSR 30MG [Interacting]
     Active Substance: DULOXETINE
     Indication: NEURALGIA
     Dosage: 90 MILLIGRAM DAILY; THREE TIMES DAILY ONE PIECE
     Route: 048
     Dates: start: 2016

REACTIONS (2)
  - Drug interaction [Recovered/Resolved]
  - Hyponatraemia [Recovered/Resolved]

NARRATIVE: CASE EVENT DATE: 201604
